FAERS Safety Report 8603802-0 (Version None)
Quarter: 2012Q3

REPORT INFORMATION
  Report Type: 
  Country: None (occurrence: None)
  Receive Date: 20120818
  Receipt Date: 20120806
  Transmission Date: 20120928
  Serious: Yes (Hospitalization)
  Sender: FDA-Public Use
  Company Number: ES-TEVA-352491ISR

PATIENT
  Age: 47 Year
  Sex: Female

DRUGS (3)
  1. AMOXICILLIN [Concomitant]
     Indication: HELICOBACTER INFECTION
     Route: 065
  2. OMEPRAZOLE [Concomitant]
     Indication: HELICOBACTER INFECTION
     Route: 065
  3. CLARITHROMYCIN [Suspect]
     Indication: HELICOBACTER INFECTION
     Route: 065

REACTIONS (1)
  - BIPOLAR I DISORDER [None]
